FAERS Safety Report 6709854-7 (Version None)
Quarter: 2010Q2

REPORT INFORMATION
  Report Type: 
  Country: None (occurrence: None)
  Receive Date: 20100503
  Receipt Date: 20100503
  Transmission Date: 20101027
  Serious: Yes (Hospitalization)
  Sender: FDA-Public Use
  Company Number: None

PATIENT
  Age: 5 Year
  Sex: Female
  Weight: 16.7831 kg

DRUGS (2)
  1. CHILDREN TYLENOL DYE FREE [Suspect]
     Indication: NASOPHARYNGITIS
     Dosage: 1 TSP EVERY 4-6 HR PO
     Route: 048
     Dates: start: 20090902, end: 20090902
  2. CHILDREN TYLENOL DYE FREE [Suspect]
     Indication: NASOPHARYNGITIS
     Dosage: 1 TSP EVERY 4-6 HR PO
     Route: 048
     Dates: start: 20100425, end: 20100425

REACTIONS (2)
  - EPISTAXIS [None]
  - HAEMATEMESIS [None]
